FAERS Safety Report 9995040 (Version 1)
Quarter: 2014Q1

REPORT INFORMATION
  Report Type: Spontaneous
  Country: US (occurrence: None)
  Receive Date: 20140218
  Receipt Date: 20140218
  Transmission Date: 20141002
  Serious: No
  Sender: FDA-Public Use
  Company Number: 1000050761

PATIENT
  Sex: Female

DRUGS (1)
  1. VIIBRYD [Suspect]
     Indication: DEPRESSION

REACTIONS (4)
  - Psychomotor hyperactivity [None]
  - Abnormal behaviour [None]
  - Hyperhidrosis [None]
  - Anxiety [None]
